FAERS Safety Report 9073824 (Version 1)
Quarter: 2013Q1

REPORT INFORMATION
  Report Type: Spontaneous
  Country: US (occurrence: US)
  Receive Date: 20130129
  Receipt Date: 20130129
  Transmission Date: 20140127
  Serious: Yes (Hospitalization)
  Sender: FDA-Public Use
  Company Number: US-ELI_LILLY_AND_COMPANY-US201301008373

PATIENT
  Age: 25 Year
  Sex: Female

DRUGS (3)
  1. ADCIRCA [Suspect]
  2. LETAIRIS [Concomitant]
     Indication: PULMONARY ARTERIAL HYPERTENSION
     Dosage: 5 MG, QD
     Dates: start: 20120717, end: 20130116
  3. EPOPROSTENOL [Concomitant]

REACTIONS (1)
  - Fluid retention [Not Recovered/Not Resolved]
